FAERS Safety Report 12454976 (Version 3)
Quarter: 2016Q3

REPORT INFORMATION
  Report Type: Report from Study
  Country: US (occurrence: US)
  Receive Date: 20160610
  Receipt Date: 20160712
  Transmission Date: 20161109
  Serious: Yes (Life-Threatening, Hospitalization, Other)
  Sender: FDA-Public Use
  Company Number: US-ACTELION-A-CH2016-137508

PATIENT
  Age: 34 Year
  Sex: Female
  Weight: 92.52 kg

DRUGS (9)
  1. SELEXIPAG [Suspect]
     Active Substance: SELEXIPAG
     Indication: PULMONARY ARTERIAL HYPERTENSION
     Dosage: 400 ?G, BID
     Route: 048
     Dates: start: 20160527, end: 20160607
  2. DEPO-PROVERA [Concomitant]
     Active Substance: MEDROXYPROGESTERONE ACETATE
     Dosage: UNK
     Dates: start: 20160421
  3. SELEXIPAG [Suspect]
     Active Substance: SELEXIPAG
     Indication: PULMONARY ARTERIAL HYPERTENSION
     Dosage: 400 ?G, BID
     Route: 048
     Dates: start: 20160527, end: 20160607
  4. ADCIRCA [Suspect]
     Active Substance: TADALAFIL
     Dosage: 20 MG, OD
     Route: 048
     Dates: start: 20160503, end: 20160508
  5. SELEXIPAG [Suspect]
     Active Substance: SELEXIPAG
     Dosage: 200 ?G, BID
     Route: 048
     Dates: start: 20160519, end: 20160526
  6. SELEXIPAG [Suspect]
     Active Substance: SELEXIPAG
     Dosage: 200 ?G, BID
     Route: 048
     Dates: start: 20160519, end: 20160526
  7. MACITENTAN [Suspect]
     Active Substance: MACITENTAN
     Indication: PULMONARY ARTERIAL HYPERTENSION
     Dosage: 10 MG, OD
     Route: 048
     Dates: start: 20160503
  8. ADCIRCA [Suspect]
     Active Substance: TADALAFIL
     Indication: PULMONARY ARTERIAL HYPERTENSION
     Dosage: 40 MG, OD
     Route: 048
     Dates: start: 20160509
  9. MACITENTAN [Suspect]
     Active Substance: MACITENTAN
     Indication: PULMONARY ARTERIAL HYPERTENSION
     Dosage: 10 MG, OD
     Route: 048
     Dates: start: 20160503

REACTIONS (21)
  - Chest pain [Unknown]
  - Electrocardiogram ST segment abnormal [None]
  - Malaise [Unknown]
  - Judgement impaired [Recovered/Resolved]
  - Depression [Unknown]
  - Poverty [Unknown]
  - Heart rate increased [Unknown]
  - Blood urine present [None]
  - Left ventricular hypertrophy [None]
  - Intentional overdose [Recovered/Resolved]
  - Family stress [Recovered/Resolved]
  - Gastric lavage [Unknown]
  - Sinus tachycardia [Unknown]
  - Hypotension [None]
  - Electrocardiogram T wave inversion [None]
  - White blood cell count increased [None]
  - Blood potassium decreased [None]
  - Hypertension [Unknown]
  - Social problem [Unknown]
  - Dizziness [Unknown]
  - Blood chloride increased [None]

NARRATIVE: CASE EVENT DATE: 20160531
